FAERS Safety Report 7814595-9 (Version None)
Quarter: 2011Q4

REPORT INFORMATION
  Report Type: 
  Country: None (occurrence: None)
  Receive Date: 20111014
  Receipt Date: 20111012
  Transmission Date: 20120403
  Serious: Yes (Hospitalization)
  Sender: FDA-Public Use
  Company Number: PHEH2011US06579

PATIENT
  Age: 71 Year
  Sex: Female

DRUGS (3)
  1. CEPHALEXIN [Concomitant]
     Dosage: 500 MG, UNK
  2. CIPROFLOXACIN [Concomitant]
     Dosage: 500 MG, UNK
  3. EXJADE [Suspect]
     Indication: IRON METABOLISM DISORDER
     Dosage: 500 MG, DAILY
     Route: 048
     Dates: start: 20100107

REACTIONS (1)
  - CEREBROVASCULAR ACCIDENT [None]
